FAERS Safety Report 16470807 (Version 1)
Quarter: 2019Q2

REPORT INFORMATION
  Report Type: Spontaneous
  Country: US (occurrence: US)
  Receive Date: 20190624
  Receipt Date: 20190624
  Transmission Date: 20190711
  Serious: No
  Sender: FDA-Public Use
  Company Number: US-009507513-1906USA006955

PATIENT
  Sex: Female

DRUGS (11)
  1. GANIRELIX ACETATE INJECTION [Suspect]
     Active Substance: GANIRELIX ACETATE
     Indication: INFERTILITY FEMALE
     Dosage: 250 MICROGRAM, QD
     Route: 058
     Dates: start: 20151109
  2. VITAMIN D (UNSPECIFIED) [Concomitant]
     Active Substance: VITAMIN D NOS
  3. SYNTHROID [Concomitant]
     Active Substance: LEVOTHYROXINE SODIUM
  4. PANTOPRAZOLE [Concomitant]
     Active Substance: PANTOPRAZOLE
  5. DOXYCYCLINE. [Concomitant]
     Active Substance: DOXYCYCLINE
  6. CRINONE [Concomitant]
     Active Substance: PROGESTERONE
  7. FOLLISTIM [Suspect]
     Active Substance: FOLLITROPIN
     Indication: INFERTILITY FEMALE
     Dosage: 450 UNITS DAILY
     Route: 058
     Dates: start: 20160119
  8. DESOGESTREL (+) ETHINYL ESTRADIOL [Concomitant]
     Active Substance: DESOGESTREL\ETHINYL ESTRADIOL
  9. LEUPROLIDE [Concomitant]
     Active Substance: LEUPROLIDE
  10. ASPIRIN. [Concomitant]
     Active Substance: ASPIRIN
  11. TRANEX [Concomitant]
     Active Substance: TRANEXAMIC ACID

REACTIONS (1)
  - Injection site urticaria [Unknown]
